FAERS Safety Report 21683017 (Version 1)
Quarter: 2022Q4

REPORT INFORMATION
  Report Type: Spontaneous
  Country: NL (occurrence: NL)
  Receive Date: 20221205
  Receipt Date: 20221205
  Transmission Date: 20230113
  Serious: Yes (Death, Life-Threatening, Other)
  Sender: FDA-Public Use
  Company Number: None

PATIENT
  Sex: Male
  Weight: 78 kg

DRUGS (1)
  1. SCOPOLAMINE [Suspect]
     Active Substance: SCOPOLAMINE
     Indication: Productive cough
     Dosage: 1 {DF} DOSAGE FORM, QD, 1 X PER DAY (2ND PATCH REMOVED AFTER A FEW HOURS)
     Route: 065
     Dates: start: 20221020, end: 20221021

REACTIONS (5)
  - Dyspnoea [Fatal]
  - Haemoptysis [Fatal]
  - Muscular weakness [Fatal]
  - Confusional state [Fatal]
  - Hallucination, visual [Fatal]
